FAERS Safety Report 6043734-8 (Version None)
Quarter: 2009Q1

REPORT INFORMATION
  Report Type: 
  Country: None (occurrence: None)
  Receive Date: 20090120
  Receipt Date: 20090115
  Transmission Date: 20090719
  Serious: Yes (Hospitalization)
  Sender: FDA-Public Use
  Company Number: FR-ASTRAZENECA-2009CG00189

PATIENT
  Age: 45 Year
  Sex: Male

DRUGS (5)
  1. DIPRIVAN [Suspect]
     Route: 042
     Dates: start: 20070115, end: 20070115
  2. ULTIVA [Suspect]
     Dates: start: 20070115, end: 20070115
  3. MORPHINE [Suspect]
     Dates: start: 20070115, end: 20070115
  4. ACUPAN [Suspect]
     Dates: start: 20070115, end: 20070115
  5. KETALAR [Suspect]
     Dates: start: 20070115, end: 20070115

REACTIONS (3)
  - ANAPHYLACTIC SHOCK [None]
  - CIRCULATORY COLLAPSE [None]
  - GENERALISED ERYTHEMA [None]
